FAERS Safety Report 24602481 (Version 1)
Quarter: 2024Q4

REPORT INFORMATION
  Report Type: Spontaneous
  Country: JP (occurrence: JP)
  Receive Date: 20241111
  Receipt Date: 20241111
  Transmission Date: 20250115
  Serious: Yes (Death, Other)
  Sender: MERCK
  Company Number: JP-MSD-M2024-05630

PATIENT
  Sex: Male

DRUGS (1)
  1. RECARBRIO [Suspect]
     Active Substance: CILASTATIN\IMIPENEM ANHYDROUS\RELEBACTAM ANHYDROUS
     Dosage: 1.25 GRAM, QID
     Route: 041
     Dates: start: 20240123

REACTIONS (2)
  - Death [Fatal]
  - Platelet count decreased [Unknown]
